FAERS Safety Report 8834723 (Version 3)
Quarter: 2016Q3

REPORT INFORMATION
  Report Type: Report from Study
  Country: SA (occurrence: SA)
  Receive Date: 20121010
  Receipt Date: 20160727
  Transmission Date: 20161109
  Serious: Yes (Hospitalization, Other)
  Sender: FDA-Public Use
  Company Number: SA-ROCHE-1139807

PATIENT

DRUGS (8)
  1. TOCILIZUMAB [Suspect]
     Active Substance: TOCILIZUMAB
     Indication: JUVENILE IDIOPATHIC ARTHRITIS
     Route: 065
  2. TOCILIZUMAB [Suspect]
     Active Substance: TOCILIZUMAB
     Indication: SYSTEMIC LUPUS ERYTHEMATOSUS
  3. TOCILIZUMAB [Suspect]
     Active Substance: TOCILIZUMAB
     Indication: VASCULITIS
  4. RITUXIMAB [Suspect]
     Active Substance: RITUXIMAB
     Indication: SYSTEMIC LUPUS ERYTHEMATOSUS
  5. TOCILIZUMAB [Suspect]
     Active Substance: TOCILIZUMAB
     Indication: AUTOINFLAMMATORY DISEASE
  6. RITUXIMAB [Suspect]
     Active Substance: RITUXIMAB
     Indication: JUVENILE IDIOPATHIC ARTHRITIS
     Route: 065
  7. RITUXIMAB [Suspect]
     Active Substance: RITUXIMAB
     Indication: AUTOINFLAMMATORY DISEASE
  8. RITUXIMAB [Suspect]
     Active Substance: RITUXIMAB
     Indication: VASCULITIS

REACTIONS (7)
  - Infusion related reaction [Unknown]
  - Septic shock [Unknown]
  - Autoantibody positive [Unknown]
  - Histiocytosis haematophagic [Unknown]
  - Infection [Unknown]
  - Fungal infection [Unknown]
  - Leukopenia [Unknown]
